FAERS Safety Report 13909602 (Version 2)
Quarter: 2017Q3

REPORT INFORMATION
  Report Type: Spontaneous
  Country: US (occurrence: US)
  Receive Date: 20170828
  Receipt Date: 20170907
  Transmission Date: 20171127
  Serious: No
  Sender: FDA-Public Use
  Company Number: US-PFIZER INC-2017365310

PATIENT
  Age: 40 Year
  Sex: Female

DRUGS (6)
  1. PREMARIN [Suspect]
     Active Substance: ESTROGENS, CONJUGATED
     Dosage: UNK
  2. SPIRIVA [Suspect]
     Active Substance: TIOTROPIUM BROMIDE MONOHYDRATE
     Dosage: UNK
  3. ONDANSETRON [Suspect]
     Active Substance: ONDANSETRON
     Dosage: UNK
  4. NEURONTIN [Suspect]
     Active Substance: GABAPENTIN
     Dosage: UNK
  5. LIPITOR [Suspect]
     Active Substance: ATORVASTATIN CALCIUM
     Dosage: UNK
  6. ADRENALINE [Suspect]
     Active Substance: EPINEPHRINE
     Dosage: UNK

REACTIONS (11)
  - Arthralgia [Unknown]
  - Joint swelling [Unknown]
  - Contusion [Unknown]
  - Synovitis [Unknown]
  - Nodule [Unknown]
  - Anion gap increased [Unknown]
  - Fatigue [Unknown]
  - Back pain [Unknown]
  - Rheumatoid factor increased [Unknown]
  - Musculoskeletal stiffness [Unknown]
  - Hypotension [Unknown]
